FAERS Safety Report 22091103 (Version 2)
Quarter: 2023Q2

REPORT INFORMATION
  Report Type: Spontaneous
  Country: JP (occurrence: JP)
  Receive Date: 20230314
  Receipt Date: 20230615
  Transmission Date: 20230722
  Serious: Yes (Hospitalization)
  Sender: FDA-Public Use
  Company Number: JP-CHUGAI-2023008580

PATIENT
  Age: 76 Year
  Sex: Male
  Weight: 59 kg

DRUGS (7)
  1. TECENTRIQ [Suspect]
     Active Substance: ATEZOLIZUMAB
     Indication: Small cell lung cancer
     Dosage: UNK
     Route: 041
     Dates: start: 20221130, end: 20230201
  2. ETOPOSIDE [Concomitant]
     Active Substance: ETOPOSIDE
     Indication: Small cell lung cancer
     Dosage: UNK
     Route: 041
     Dates: start: 20221130, end: 20230203
  3. CARBOPLATIN [Concomitant]
     Active Substance: CARBOPLATIN
     Indication: Small cell lung cancer
     Dosage: UNK
     Route: 041
     Dates: start: 20221130, end: 20230201
  4. GRANISETRON HYDROCHLORIDE [Concomitant]
     Active Substance: GRANISETRON HYDROCHLORIDE
     Dosage: UNK
     Route: 041
     Dates: start: 20221130, end: 20230201
  5. DEXAMETHASONE SODIUM PHOSPHATE [Concomitant]
     Active Substance: DEXAMETHASONE SODIUM PHOSPHATE
     Dosage: UNK
     Route: 065
     Dates: start: 20221130, end: 20230201
  6. APREPITANT [Concomitant]
     Active Substance: APREPITANT
     Dosage: UNK
     Route: 048
     Dates: start: 20221130, end: 20230203
  7. CLOPERASTINE HYDROCHLORIDE [Concomitant]
     Active Substance: CLOPERASTINE HYDROCHLORIDE
     Dosage: UNK
     Route: 048
     Dates: start: 20221125, end: 20230221

REACTIONS (1)
  - Hypopituitarism [Recovering/Resolving]

NARRATIVE: CASE EVENT DATE: 20230221
